FAERS Safety Report 22029307 (Version 1)
Quarter: 2023Q1

REPORT INFORMATION
  Report Type: Report from Study
  Country: US (occurrence: US)
  Receive Date: 20230223
  Receipt Date: 20230223
  Transmission Date: 20230417
  Serious: Yes (Hospitalization)
  Sender: FDA-Public Use
  Company Number: US-ABBVIE-4315813

PATIENT
  Sex: Male

DRUGS (2)
  1. VENCLEXTA [Suspect]
     Active Substance: VENETOCLAX
     Indication: Acute myeloid leukaemia recurrent
     Dosage: TAKE ONE TABLET BY MOUTH ALONG WITH 2X10MG TABS WITH FOOD ON DAYS 1- 21 (TOTAL  DOSE=70MG)
     Route: 048
  2. VENCLEXTA [Suspect]
     Active Substance: VENETOCLAX
     Indication: Acute myeloid leukaemia recurrent
     Dosage: TAKE 2 TAB BY MOUTH ALONG WITH 1X50MG TAB WITH FOOD ON DAYS 1-21 (TOTAL DOSE=70MG)
     Route: 048

REACTIONS (2)
  - Leukaemia recurrent [Unknown]
  - Off label use [Unknown]
